FAERS Safety Report 19747172 (Version 2)
Quarter: 2021Q4

REPORT INFORMATION
  Report Type: Spontaneous
  Country: US (occurrence: US)
  Receive Date: 20210825
  Receipt Date: 20211029
  Transmission Date: 20220303
  Serious: Yes (Other)
  Sender: FDA-Public Use
  Company Number: US-BAYER-2021-198784

PATIENT
  Age: 37 Year
  Sex: Female

DRUGS (1)
  1. MIRENA [Suspect]
     Active Substance: LEVONORGESTREL
     Indication: Contraception
     Dosage: 20?G/DAY
     Route: 015
     Dates: start: 20210527, end: 202108

REACTIONS (2)
  - Genital haemorrhage [Not Recovered/Not Resolved]
  - Device expulsion [Recovered/Resolved]

NARRATIVE: CASE EVENT DATE: 20210801
